FAERS Safety Report 7809202-5 (Version None)
Quarter: 2011Q4

REPORT INFORMATION
  Report Type: 
  Country: None (occurrence: None)
  Receive Date: 20111012
  Receipt Date: 20110929
  Transmission Date: 20120403
  Serious: Yes (Other)
  Sender: FDA-Public Use
  Company Number: US-JNJFOC-20111002600

PATIENT
  Sex: Female

DRUGS (2)
  1. BENADRYL [Suspect]
     Indication: MULTIPLE ALLERGIES
     Dosage: ONE  KAPGEL, ONCE
     Route: 048
  2. BENADRYL [Suspect]
     Route: 048

REACTIONS (1)
  - ANAPHYLACTIC REACTION [None]
